FAERS Safety Report 16910947 (Version 3)
Quarter: 2019Q4

REPORT INFORMATION
  Report Type: Spontaneous
  Country: CN (occurrence: CN)
  Receive Date: 20191012
  Receipt Date: 20191015
  Transmission Date: 20200122
  Serious: Yes (Death)
  Sender: FDA-Public Use
  Company Number: PHHY2019CN227584

PATIENT
  Age: 47 Year
  Sex: Female

DRUGS (2)
  1. IMATINIB. [Suspect]
     Active Substance: IMATINIB MESYLATE
     Indication: AUTOIMMUNE HAEMOLYTIC ANAEMIA
     Dosage: UNK
     Route: 065
  2. PREDNISONE. [Suspect]
     Active Substance: PREDNISONE
     Indication: AUTOIMMUNE HAEMOLYTIC ANAEMIA
     Dosage: 20 MG, QD
     Route: 065

REACTIONS (8)
  - Immune reconstitution inflammatory syndrome [Fatal]
  - Product use in unapproved indication [Unknown]
  - Pyrexia [Fatal]
  - Respiratory failure [Fatal]
  - Pneumonitis [Fatal]
  - Hemiplegia [Fatal]
  - Meningitis cryptococcal [Fatal]
  - Visual impairment [Fatal]
